FAERS Safety Report 19570532 (Version 5)
Quarter: 2021Q3

REPORT INFORMATION
  Report Type: Other
  Country: US (occurrence: US)
  Receive Date: 20210715
  Receipt Date: 20210831
  Transmission Date: 20211014
  Serious: No
  Sender: FDA-Public Use
  Company Number: US-ROCHE-2869344

PATIENT
  Sex: Female

DRUGS (1)
  1. OCREVUS [Suspect]
     Active Substance: OCRELIZUMAB
     Indication: MULTIPLE SCLEROSIS
     Dosage: DATE OF TREATMENT: 17/JUL/2019, 07/JAN/2020, 23/APR/2020, 22/OCT/2020.?PRESCRIBED WITH INITIAL DOSE
     Route: 065
     Dates: start: 20190703

REACTIONS (2)
  - COVID-19 [Unknown]
  - Illness [Unknown]
